FAERS Safety Report 14125395 (Version 1)
Quarter: 2017Q4

REPORT INFORMATION
  Report Type: Spontaneous
  Country: FR (occurrence: FR)
  Receive Date: 20171025
  Receipt Date: 20171025
  Transmission Date: 20180321
  Serious: Yes (Other)
  Sender: FDA-Public Use
  Company Number: FR-MERCK KGAA-2031445

PATIENT
  Age: 57 Year
  Sex: Female

DRUGS (1)
  1. NOVOTHYROX [Suspect]
     Active Substance: LEVOTHYROXINE SODIUM
     Indication: PRODUCT USED FOR UNKNOWN INDICATION

REACTIONS (11)
  - Muscle spasms [None]
  - Blood thyroid stimulating hormone decreased [None]
  - Hyperhidrosis [None]
  - Vertigo [None]
  - Thirst [None]
  - Asphyxia [None]
  - Nausea [None]
  - Malaise [None]
  - Abdominal pain upper [None]
  - Fatigue [None]
  - Gastrointestinal pain [None]

NARRATIVE: CASE EVENT DATE: 201708
